FAERS Safety Report 8958488 (Version 1)
Quarter: 2012Q4

REPORT INFORMATION
  Report Type: Spontaneous
  Country: US (occurrence: None)
  Receive Date: 20121205
  Receipt Date: 20121205
  Transmission Date: 20130627
  Serious: Yes (Life-Threatening, Hospitalization, Disabling)
  Sender: FDA-Public Use
  Company Number: None

PATIENT
  Age: 56 Year
  Sex: Male
  Weight: 59.42 kg

DRUGS (2)
  1. GABAPENTIN [Suspect]
     Indication: HEADACHE
     Dosage: 300mg   3 times daily  047
     Dates: start: 2011, end: 2012
  2. GABAPENTIN [Suspect]
     Dosage: 100mg   3 times daily     047
     Dates: start: 2011, end: 2012

REACTIONS (12)
  - Headache [None]
  - Chest pain [None]
  - Chest discomfort [None]
  - Weight decreased [None]
  - Tremor [None]
  - Pain in extremity [None]
  - Aggression [None]
  - Muscular weakness [None]
  - Muscular weakness [None]
  - Muscle twitching [None]
  - Coordination abnormal [None]
  - Social avoidant behaviour [None]
